FAERS Safety Report 5921392-8 (Version None)
Quarter: 2008Q4

REPORT INFORMATION
  Report Type: 
  Country: None (occurrence: None)
  Receive Date: 20081014
  Receipt Date: 20081008
  Transmission Date: 20090506
  Serious: Yes (Hospitalization)
  Sender: FDA-Public Use
  Company Number: 2008AL011057

PATIENT
  Age: 73 Year
  Sex: Female
  Weight: 62.1428 kg

DRUGS (1)
  1. DIGOXIN [Suspect]
     Indication: CARDIAC FAILURE CONGESTIVE
     Dosage: DAILY, PO
     Route: 048

REACTIONS (3)
  - DIZZINESS [None]
  - FALL [None]
  - HEART RATE INCREASED [None]
